FAERS Safety Report 11109530 (Version 1)
Quarter: 2015Q2

REPORT INFORMATION
  Report Type: Spontaneous
  Country: US (occurrence: None)
  Receive Date: 20150511
  Receipt Date: 20150511
  Transmission Date: 20150821
  Serious: No
  Sender: FDA-Public Use
  Company Number: None

PATIENT
  Age: 72 Year
  Sex: Female
  Weight: 68.95 kg

DRUGS (1)
  1. CAPECITABINE. [Suspect]
     Active Substance: CAPECITABINE
     Indication: BREAST CANCER
     Dosage: 1500MG AM?2000MG PM
     Route: 048
     Dates: start: 20100401

REACTIONS (2)
  - Nail discolouration [None]
  - Skin exfoliation [None]

NARRATIVE: CASE EVENT DATE: 20150509
